FAERS Safety Report 6183147-1 (Version None)
Quarter: 2009Q2

REPORT INFORMATION
  Report Type: 
  Country: None (occurrence: None)
  Receive Date: 20090506
  Receipt Date: 20090423
  Transmission Date: 20091009
  Serious: Yes (Other)
  Sender: FDA-Public Use
  Company Number: 2009-0608

PATIENT
  Age: 78 Year
  Sex: Female

DRUGS (7)
  1. SOMATULINA AUTOGEL 120MG (LANREOTIDE ACETATE) (LANREOTIDE ACETATE) [Suspect]
     Dosage: (120 MG, 1 IN 28 D)
 SUBCUTANEOUS
     Route: 058
     Dates: start: 20090121, end: 20090218
  2. SINTROM [Suspect]
     Indication: ATRIAL FIBRILLATION
     Dosage: 4 MG (4 MG,DAILY)
     Dates: start: 20081001
  3. INSULINA LANTUS [Concomitant]
  4. GEMFIBROZILO [Concomitant]
  5. DAONIL [Concomitant]
  6. LOSARTAN POTASSIUM [Concomitant]
  7. ESPIRONOLACTONA [Concomitant]

REACTIONS (3)
  - DRUG INTERACTION [None]
  - GINGIVAL BLEEDING [None]
  - INTERNATIONAL NORMALISED RATIO INCREASED [None]
